FAERS Safety Report 8139667-3 (Version None)
Quarter: 2012Q1

REPORT INFORMATION
  Report Type: 
  Country: None (occurrence: None)
  Receive Date: 20120215
  Receipt Date: 20120209
  Transmission Date: 20120608
  Serious: Yes (Other)
  Sender: FDA-Public Use
  Company Number: PHEH2011US00797

PATIENT
  Sex: Female

DRUGS (1)
  1. GILENYA [Suspect]
     Indication: RELAPSING-REMITTING MULTIPLE SCLEROSIS
     Dosage: UNK UKN, UNK
     Route: 048
     Dates: start: 20090301

REACTIONS (5)
  - WHITE BLOOD CELL COUNT DECREASED [None]
  - SINUSITIS [None]
  - NASOPHARYNGITIS [None]
  - BREAST MASS [None]
  - URINARY TRACT INFECTION [None]
